FAERS Safety Report 18330474 (Version 1)
Quarter: 2020Q3

REPORT INFORMATION
  Report Type: Spontaneous
  Country: ES (occurrence: ES)
  Receive Date: 20200930
  Receipt Date: 20200930
  Transmission Date: 20201103
  Serious: Yes (Hospitalization)
  Sender: FDA-Public Use
  Company Number: NVSC2020ES261632

PATIENT
  Age: 88 Year
  Sex: Female

DRUGS (7)
  1. ELIDEL [Concomitant]
     Active Substance: PIMECROLIMUS
     Indication: PSORIASIS
     Dosage: 1 DF, Q12H ( 10 MG/G CREMA, 1 TUBO DE 60 G)
     Route: 061
     Dates: start: 20151112
  2. ALPRAZOLAM. [Concomitant]
     Active Substance: ALPRAZOLAM
     Indication: PERSISTENT DEPRESSIVE DISORDER
     Dosage: 0.5 MG, Q12H (0,5 MG 30 COMPRIMIDOS)
     Route: 048
     Dates: start: 20130906
  3. SERTRALINE [Concomitant]
     Active Substance: SERTRALINE HYDROCHLORIDE
     Indication: PERSISTENT DEPRESSIVE DISORDER
     Dosage: 50 MG, Q24H ( 50 MG 20 COMPRIMIDOS)
     Route: 048
     Dates: start: 20190815
  4. PARACETAMOL [Concomitant]
     Active Substance: ACETAMINOPHEN
     Indication: CELLULITIS
     Dosage: 1 G, Q8H (1.000 MG 40 COMPRIMIDOS)
     Route: 048
     Dates: start: 20180226
  5. BISOPROLOL [Suspect]
     Active Substance: BISOPROLOL
     Indication: ATRIAL FIBRILLATION
     Dosage: 2.5 MG, Q24H
     Route: 048
     Dates: start: 20190815, end: 20200116
  6. DAIVOBET [Concomitant]
     Active Substance: BETAMETHASONE DIPROPIONATE\CALCIPOTRIENE
     Indication: PSORIASIS
     Dosage: 1 DF, Q24H (  50 MICROGRAMOS/ 0,5 MG/G POMADA, 1 TUBO DE 60 G)
     Route: 061
     Dates: start: 20171115
  7. FUROSEMIDA [Concomitant]
     Active Substance: FUROSEMIDE
     Indication: CARDIAC FAILURE
     Dosage: 40 MG, Q24H ( 40 MG 30 COMPRIMIDOS)
     Route: 048
     Dates: start: 20190815

REACTIONS (1)
  - Atrioventricular block [Recovered/Resolved]

NARRATIVE: CASE EVENT DATE: 20200116
